FAERS Safety Report 5909130-6 (Version None)
Quarter: 2008Q4

REPORT INFORMATION
  Report Type: 
  Country: None (occurrence: None)
  Receive Date: 20081006
  Receipt Date: 20080923
  Transmission Date: 20090506
  Serious: Yes (Other)
  Sender: FDA-Public Use
  Company Number: GE-ABBOTT-08P-225-0479534-00

PATIENT
  Sex: Female

DRUGS (1)
  1. MERIDIA [Suspect]
     Indication: OBESITY
     Dosage: NOT REPORTED

REACTIONS (2)
  - PYELONEPHRITIS [None]
  - RENAL FAILURE [None]
